FAERS Safety Report 11933927 (Version 3)
Quarter: 2016Q1

REPORT INFORMATION
  Report Type: Report from Study
  Country: US (occurrence: US)
  Receive Date: 20160121
  Receipt Date: 20160301
  Transmission Date: 20160526
  Serious: Yes (Hospitalization)
  Sender: FDA-Public Use
  Company Number: US-MYLANLABS-2016M1002026

PATIENT

DRUGS (8)
  1. RISPERDAL [Concomitant]
     Active Substance: RISPERIDONE
  2. CLOZAPINE. [Suspect]
     Active Substance: CLOZAPINE
     Indication: SCHIZOAFFECTIVE DISORDER DEPRESSIVE TYPE
     Dosage: 100 MG, BID
     Route: 048
  3. CLOZAPINE. [Suspect]
     Active Substance: CLOZAPINE
     Dosage: 300 MG, PM
     Route: 048
  4. MELATONIN [Concomitant]
     Active Substance: MELATONIN
  5. ZYPREXA ZYDIS [Concomitant]
     Active Substance: OLANZAPINE
  6. LITHIUM. [Concomitant]
     Active Substance: LITHIUM
  7. METFORMIN [Concomitant]
     Active Substance: METFORMIN HYDROCHLORIDE
  8. ELAVIL [Concomitant]
     Active Substance: AMITRIPTYLINE HYDROCHLORIDE
     Dosage: UNK
     Dates: end: 2016

REACTIONS (2)
  - Neutrophil count decreased [Recovered/Resolved]
  - Hallucination [Unknown]

NARRATIVE: CASE EVENT DATE: 20160107
